FAERS Safety Report 12758726 (Version 1)
Quarter: 2016Q3

REPORT INFORMATION
  Report Type: Spontaneous
  Country: AR (occurrence: AR)
  Receive Date: 20160919
  Receipt Date: 20160919
  Transmission Date: 20161109
  Serious: Yes (Hospitalization)
  Sender: FDA-Public Use
  Company Number: AR-ROCHE-1827906

PATIENT
  Age: 62 Year
  Sex: Female

DRUGS (1)
  1. HERCEPTIN [Suspect]
     Active Substance: TRASTUZUMAB
     Indication: BREAST CANCER
     Route: 042
     Dates: start: 201509

REACTIONS (6)
  - Vascular fragility [Not Recovered/Not Resolved]
  - Vascular pain [Not Recovered/Not Resolved]
  - Hip fracture [Not Recovered/Not Resolved]
  - Upper limb fracture [Not Recovered/Not Resolved]
  - Fall [Unknown]
  - Venous injury [Not Recovered/Not Resolved]

NARRATIVE: CASE EVENT DATE: 201509
